FAERS Safety Report 7526268-0 (Version None)
Quarter: 2011Q2

REPORT INFORMATION
  Report Type: 
  Country: None (occurrence: None)
  Receive Date: 20110606
  Receipt Date: 20110510
  Transmission Date: 20111010
  Serious: Yes (Hospitalization, Other)
  Sender: FDA-Public Use
  Company Number: US-BAYER-201037939NA

PATIENT
  Age: 31 Year
  Sex: Female
  Weight: 103.86 kg

DRUGS (11)
  1. YASMIN [Suspect]
     Indication: CONTRACEPTION
     Dosage: UNK
     Route: 048
     Dates: start: 20020101, end: 20070101
  2. PHENAVENT [Concomitant]
     Dosage: UNK UNK, BID
     Route: 048
     Dates: start: 20061001
  3. CLARITHROMYCIN [Concomitant]
     Dosage: 500 MG, BID
     Route: 048
     Dates: start: 20060101
  4. PSEUDOEPHEDRINE HCL [Concomitant]
     Dosage: UNK UNK, BID
     Route: 048
     Dates: start: 20060901
  5. ALBUTEROL SULFATE AUTOHALER [Concomitant]
     Dosage: UNK UNK, PRN
  6. FUROSEMIDE [Concomitant]
     Dosage: 20 MG, QD
     Route: 048
     Dates: start: 20060101
  7. CRANTEX LA [Concomitant]
     Dosage: UNK UNK, BID
     Route: 048
     Dates: start: 20061001
  8. METOCLOPRAMIDE [Concomitant]
     Dosage: 10 MG, TID
     Route: 048
     Dates: start: 20070801
  9. CEFUROXIME [Concomitant]
     Dosage: 500 MG, BID
     Route: 048
     Dates: start: 20070701
  10. AVELOX [Concomitant]
     Dosage: 400 MG, BID
     Route: 048
     Dates: start: 20060301
  11. CEPHALEXIN [Concomitant]
     Dosage: 500 MG, TID
     Route: 048
     Dates: start: 20060101

REACTIONS (6)
  - PANIC ATTACK [None]
  - PAIN [None]
  - INFLUENZA LIKE ILLNESS [None]
  - GALLBLADDER DISORDER [None]
  - ANXIETY [None]
  - ABDOMINAL PAIN [None]
